FAERS Safety Report 11630120 (Version 1)
Quarter: 2015Q4

REPORT INFORMATION
  Report Type: Spontaneous
  Country: US (occurrence: US)
  Receive Date: 20151014
  Receipt Date: 20151014
  Transmission Date: 20160304
  Serious: No
  Sender: FDA-Public Use
  Company Number: US-INDIVIOR-RB-080115-2015

PATIENT
  Sex: Male

DRUGS (3)
  1. SUBOXONE [Suspect]
     Active Substance: BUPRENORPHINE HYDROCHLORIDE\NALOXONE HYDROCHLORIDE
     Dosage: UNK, TAPERED DOSES, DAILY, ABOUT 4 MONTHS
     Route: 060
     Dates: start: 201501, end: 201505
  2. SUBOXONE [Suspect]
     Active Substance: BUPRENORPHINE HYDROCHLORIDE\NALOXONE HYDROCHLORIDE
     Indication: DRUG DEPENDENCE
     Dosage: 16MD, DAILY ( ABOUT 1 YEAR)
     Route: 060
     Dates: start: 2010, end: 201101
  3. SUBOXONE [Suspect]
     Active Substance: BUPRENORPHINE HYDROCHLORIDE\NALOXONE HYDROCHLORIDE
     Dosage: 16MG, DAILY, ABOUT 3 MONTHS
     Route: 060
     Dates: start: 201410, end: 201501

REACTIONS (7)
  - Intentional underdose [Recovered/Resolved]
  - Insomnia [Recovered/Resolved]
  - Product preparation error [Recovered/Resolved]
  - Diplopia [Recovered/Resolved]
  - Psychomotor hyperactivity [Not Recovered/Not Resolved]
  - Drug withdrawal syndrome [Recovering/Resolving]
  - Mood swings [Recovering/Resolving]

NARRATIVE: CASE EVENT DATE: 201101
